FAERS Safety Report 18070158 (Version 1)
Quarter: 2020Q3

REPORT INFORMATION
  Report Type: Spontaneous
  Country: GR (occurrence: GR)
  Receive Date: 20200727
  Receipt Date: 20200727
  Transmission Date: 20201103
  Serious: Yes (Death, Hospitalization)
  Sender: FDA-Public Use
  Company Number: GR-TEVA-2020-GR-1805830

PATIENT
  Age: 20 Year
  Sex: Male

DRUGS (18)
  1. DOXORUBICIN [Suspect]
     Active Substance: DOXORUBICIN
     Indication: NON-HODGKIN^S LYMPHOMA
     Dosage: RECEIVED ACCORDING TO A GERMAN MULTICENTER ACUTE LYMPHOBLASTIC LEUKAEMIA (GMALL) 07/2003 PROTOCOL
     Route: 065
  2. CYTARABINE. [Suspect]
     Active Substance: CYTARABINE
     Indication: NON-HODGKIN^S LYMPHOMA
     Dosage: RECEIVED ACCORDING TO A GERMAN MULTICENTER ACUTE LYMPHOBLASTIC LEUKAEMIA (GMALL) 07/2003 PROTOCOL
     Route: 065
  3. DAUNORUBICIN [Suspect]
     Active Substance: DAUNORUBICIN
     Indication: NON-HODGKIN^S LYMPHOMA
     Dosage: RECEIVED ACCORDING TO A GERMAN MULTICENTER ACUTE LYMPHOBLASTIC LEUKAEMIA (GMALL) 07/2003 PROTOCOL
     Route: 065
  4. VINDESINE [Suspect]
     Active Substance: VINDESINE
     Indication: NON-HODGKIN^S LYMPHOMA
     Dosage: RECEIVED ACCORDING TO A GERMAN MULTICENTER ACUTE LYMPHOBLASTIC LEUKAEMIA (GMALL) 07/2003 PROTOCOL
     Route: 065
  5. METHOTREXATE. [Suspect]
     Active Substance: METHOTREXATE
     Indication: NON-HODGKIN^S LYMPHOMA
     Route: 037
  6. VINCRISTINE [Suspect]
     Active Substance: VINCRISTINE
     Indication: NON-HODGKIN^S LYMPHOMA
     Dosage: RECEIVED ACCORDING TO A GERMAN MULTICENTER ACUTE LYMPHOBLASTIC LEUKAEMIA (GMALL) 07/2003 PROTOCOL
     Route: 065
  7. FLUDARABINE [Suspect]
     Active Substance: FLUDARABINE PHOSPHATE
     Indication: NON-HODGKIN^S LYMPHOMA
     Dosage: RECEIVED ACCORDING TO A GERMAN MULTICENTER ACUTE LYMPHOBLASTIC LEUKAEMIA (GMALL) 07/2003 PROTOCOL
     Route: 065
  8. IDARUBICIN [Suspect]
     Active Substance: IDARUBICIN
     Indication: NON-HODGKIN^S LYMPHOMA
     Dosage: RECEIVED ACCORDING TO A GERMAN MULTICENTER ACUTE LYMPHOBLASTIC LEUKAEMIA (GMALL) 07/2003 PROTOCOL
     Route: 065
  9. METHOTREXATE. [Suspect]
     Active Substance: METHOTREXATE
     Indication: NON-HODGKIN^S LYMPHOMA
     Dosage: RECEIVED ACCORDING TO A GERMAN MULTICENTER ACUTE LYMPHOBLASTIC LEUKAEMIA (GMALL) 07/2003 PROTOCOL
     Route: 065
  10. CLADRIBINE. [Suspect]
     Active Substance: CLADRIBINE
     Indication: NON-HODGKIN^S LYMPHOMA
     Dosage: RECEIVED ACCORDING TO A GERMAN MULTICENTER ACUTE LYMPHOBLASTIC LEUKAEMIA (GMALL) 07/2003 PROTOCOL
     Route: 065
  11. CYCLOPHOSPHAMIDE. [Suspect]
     Active Substance: CYCLOPHOSPHAMIDE
     Indication: NON-HODGKIN^S LYMPHOMA
     Dosage: RECEIVED ACCORDING TO A GERMAN MULTICENTER ACUTE LYMPHOBLASTIC LEUKAEMIA (GMALL) 07/2003 PROTOCOL
     Route: 065
  12. TENIPOSIDE. [Suspect]
     Active Substance: TENIPOSIDE
     Indication: NON-HODGKIN^S LYMPHOMA
     Dosage: RECEIVED ACCORDING TO A GERMAN MULTICENTER ACUTE LYMPHOBLASTIC LEUKAEMIA (GMALL) 07/2003 PROTOCOL
     Route: 065
  13. ETOPOSIDE. [Suspect]
     Active Substance: ETOPOSIDE
     Indication: NON-HODGKIN^S LYMPHOMA
     Dosage: RECEIVED ACCORDING TO A GERMAN MULTICENTER ACUTE LYMPHOBLASTIC LEUKAEMIA (GMALL) 07/2003 PROTOCOL
     Route: 065
  14. PREDNISOLONE. [Suspect]
     Active Substance: PREDNISOLONE
     Indication: NON-HODGKIN^S LYMPHOMA
     Dosage: RECEIVED ACCORDING TO A GERMAN MULTICENTER ACUTE LYMPHOBLASTIC LEUKAEMIA (GMALL) 07/2003 PROTOCOL
     Route: 065
  15. ASPARAGINASE [Suspect]
     Active Substance: ASPARAGINASE
     Indication: NON-HODGKIN^S LYMPHOMA
     Dosage: RECEIVED ACCORDING TO A GERMAN MULTICENTER ACUTE LYMPHOBLASTIC LEUKAEMIA (GMALL) 07/2003 PROTOCOL
     Route: 065
  16. DEXAMETHASONE. [Suspect]
     Active Substance: DEXAMETHASONE
     Indication: NON-HODGKIN^S LYMPHOMA
     Dosage: RECEIVED ACCORDING TO A GERMAN MULTICENTER ACUTE LYMPHOBLASTIC LEUKAEMIA (GMALL) 07/2003 PROTOCOL
     Route: 065
  17. MERCAPTOPURINE. [Suspect]
     Active Substance: MERCAPTOPURINE
     Indication: NON-HODGKIN^S LYMPHOMA
     Dosage: RECEIVED ACCORDING TO A GERMAN MULTICENTER ACUTE LYMPHOBLASTIC LEUKAEMIA (GMALL) 07/2003 PROTOCOL
     Route: 065
  18. TIOGUANINE [Suspect]
     Active Substance: THIOGUANINE ANHYDROUS
     Indication: NON-HODGKIN^S LYMPHOMA
     Dosage: RECEIVED ACCORDING TO A GERMAN MULTICENTER ACUTE LYMPHOBLASTIC LEUKAEMIA (GMALL) 07/2003 PROTOCOL
     Route: 065

REACTIONS (4)
  - Septic shock [Fatal]
  - Leukopenia [Not Recovered/Not Resolved]
  - Bacterial infection [Not Recovered/Not Resolved]
  - Nosocomial infection [Not Recovered/Not Resolved]
